FAERS Safety Report 5677033-0 (Version None)
Quarter: 2008Q1

REPORT INFORMATION
  Report Type: 
  Country: None (occurrence: None)
  Receive Date: 20080324
  Receipt Date: 20080318
  Transmission Date: 20080703
  Serious: Yes (Hospitalization)
  Sender: FDA-Public Use
  Company Number: HR-AVENTIS-200811225EU

PATIENT
  Age: 64 Year
  Sex: Female

DRUGS (3)
  1. CLEXANE [Suspect]
     Indication: DEEP VEIN THROMBOSIS
     Route: 058
     Dates: start: 20080218
  2. MARIVARIN [Suspect]
     Indication: DEEP VEIN THROMBOSIS
     Route: 048
     Dates: start: 20080220, end: 20080221
  3. MARIVARIN [Suspect]
     Route: 048
     Dates: start: 20080222, end: 20080226

REACTIONS (2)
  - HEPATITIS TOXIC [None]
  - MIXED LIVER INJURY [None]
